FAERS Safety Report 7385993-5 (Version None)
Quarter: 2011Q1

REPORT INFORMATION
  Report Type: 
  Country: None (occurrence: None)
  Receive Date: 20110331
  Receipt Date: 20101215
  Transmission Date: 20110831
  Serious: Yes (Hospitalization, Other)
  Sender: FDA-Public Use
  Company Number: US-BAYER-201041681NA

PATIENT
  Sex: Female
  Weight: 86.168 kg

DRUGS (5)
  1. YASMIN [Suspect]
     Indication: MENSTRUAL CYCLE MANAGEMENT
     Dosage: UNK
     Route: 048
     Dates: start: 20080401, end: 20090215
  2. NAPROXEN [Concomitant]
     Dosage: 500 MG, BID
     Route: 048
     Dates: end: 20081107
  3. ZOFRAN [Concomitant]
     Indication: NAUSEA
  4. YAZ [Suspect]
     Indication: ORAL CONTRACEPTION
     Dosage: UNK
     Route: 048
     Dates: start: 20080416, end: 20081014
  5. YASMIN [Suspect]
     Indication: ORAL CONTRACEPTION

REACTIONS (7)
  - CHOLECYSTITIS CHRONIC [None]
  - PROCEDURAL PAIN [None]
  - GALLBLADDER DISORDER [None]
  - ABDOMINAL PAIN UPPER [None]
  - CHOLELITHIASIS [None]
  - GALLBLADDER POLYP [None]
  - GALLBLADDER CHOLESTEROLOSIS [None]
